FAERS Safety Report 12620496 (Version 3)
Quarter: 2021Q2

REPORT INFORMATION
  Report Type: Spontaneous
  Country: US (occurrence: US)
  Receive Date: 20160804
  Receipt Date: 20210529
  Transmission Date: 20210716
  Serious: Yes (Life-Threatening, Hospitalization, Other)
  Sender: FDA-Public Use
  Company Number: US-JNJFOC-20160720142

PATIENT
  Age: 28 Year
  Sex: Female
  Weight: 94 kg

DRUGS (1)
  1. PARACETAMOL [Suspect]
     Active Substance: ACETAMINOPHEN
     Indication: SUICIDE ATTEMPT
     Dosage: SINGLE DOSE TOTAL OF 2600 MG TAKEN AT 1 TIME AT 0500
     Route: 065
     Dates: start: 19980312, end: 19980312

REACTIONS (3)
  - Suicide attempt [Unknown]
  - Intentional product misuse [Unknown]
  - Acute hepatic failure [Recovered/Resolved]

NARRATIVE: CASE EVENT DATE: 19980313
